FAERS Safety Report 21881805 (Version 1)
Quarter: 2023Q1

REPORT INFORMATION
  Report Type: Spontaneous
  Country: FR (occurrence: FR)
  Receive Date: 20230119
  Receipt Date: 20230119
  Transmission Date: 20230417
  Serious: Yes (Hospitalization)
  Sender: FDA-Public Use
  Company Number: FR-AFSSAPS-PP2023000006

PATIENT
  Age: 29 Year
  Sex: Male

DRUGS (1)
  1. METRONIDAZOLE [Suspect]
     Active Substance: METRONIDAZOLE
     Indication: Blastocystis infection
     Dosage: 500 MILLIGRAM, 3 TIMES A DAY (3 CP OF 500MG / DAY)
     Route: 048
     Dates: start: 20221120, end: 20221128

REACTIONS (4)
  - Vertigo [Recovered/Resolved]
  - Depersonalisation/derealisation disorder [Recovered/Resolved]
  - Head discomfort [Recovering/Resolving]
  - Confusional state [Recovering/Resolving]

NARRATIVE: CASE EVENT DATE: 20221124
